FAERS Safety Report 14062250 (Version 2)
Quarter: 2017Q4

REPORT INFORMATION
  Report Type: Spontaneous
  Country: US (occurrence: US)
  Receive Date: 20171009
  Receipt Date: 20171026
  Transmission Date: 20180321
  Serious: No
  Sender: FDA-Public Use
  Company Number: US-PFIZER INC-2017388607

PATIENT
  Age: 10 Year
  Sex: Male
  Weight: 72 kg

DRUGS (5)
  1. GENOTROPIN [Suspect]
     Active Substance: SOMATROPIN
     Dosage: UNK
  2. GENOTROPIN [Suspect]
     Active Substance: SOMATROPIN
     Indication: SILVER-RUSSELL SYNDROME
     Dosage: 1.6 MG, ONCE A DAY (INJECTION, ONCE A DAY)
     Dates: start: 20160610
  3. GENOTROPIN [Suspect]
     Active Substance: SOMATROPIN
     Dosage: 1.9 MG, ONCE A DAY (ONCE DURING THE NIGHT)
     Route: 030
  4. PEDIASURE [Concomitant]
     Active Substance: VITAMINS
     Indication: UNDERWEIGHT
     Dosage: 1 DF, TWICE A DAY (2 CANS PER DAY)
  5. CYPROHEPTADINE. [Concomitant]
     Active Substance: CYPROHEPTADINE
     Indication: GASTRIC DISORDER
     Dosage: 5 MG, ONCE A DAY
     Route: 048

REACTIONS (2)
  - Product use in unapproved indication [Unknown]
  - Incorrect route of drug administration [Unknown]
